FAERS Safety Report 23442553 (Version 1)
Quarter: 2024Q1

REPORT INFORMATION
  Report Type: Spontaneous
  Country: US (occurrence: None)
  Receive Date: 20240124
  Receipt Date: 20240124
  Transmission Date: 20240410
  Serious: Yes (Death)
  Sender: FDA-Public Use
  Company Number: None

PATIENT
  Age: 80 Year
  Sex: Female
  Weight: 60.78 kg

DRUGS (10)
  1. MEMANTINE [Suspect]
     Active Substance: MEMANTINE
     Indication: Hepatocellular carcinoma
     Dosage: FREQUENCY : TWICE A DAY;?
     Route: 048
     Dates: start: 20231204
  2. Dronabinol (MARINOL) [Concomitant]
  3. ELIQUIS [Concomitant]
     Active Substance: APIXABAN
  4. Camphor-menthol  (SARNA) [Concomitant]
  5. Midodrine (PROAMATINE) [Concomitant]
  6. REMERON [Concomitant]
     Active Substance: MIRTAZAPINE
  7. Rifaximin (XIFAXAN) [Concomitant]
  8. Lactulose (Constulose) [Concomitant]
  9. PROTONIX [Concomitant]
     Active Substance: PANTOPRAZOLE SODIUM
  10. Mupirocin (BACTROBAN) 2% OINTMENT [Concomitant]

REACTIONS (3)
  - Syncope [None]
  - Vomiting [None]
  - Cardiac arrest [None]

NARRATIVE: CASE EVENT DATE: 20240124
